FAERS Safety Report 9283305 (Version 2)
Quarter: 2013Q2

REPORT INFORMATION
  Report Type: Spontaneous
  Country: CO (occurrence: CO)
  Receive Date: 20130510
  Receipt Date: 20130516
  Transmission Date: 20140414
  Serious: Yes (Hospitalization)
  Sender: FDA-Public Use
  Company Number: PHHY2013CO046412

PATIENT
  Age: 64 Year
  Sex: Female

DRUGS (2)
  1. AFINITOR [Suspect]
     Indication: BREAST CANCER
     Route: 048
  2. VERAPAMIL [Suspect]
     Indication: HYPERTENSION
     Dosage: UNK

REACTIONS (1)
  - Atrioventricular block second degree [Recovered/Resolved]
